FAERS Safety Report 5669590-5 (Version None)
Quarter: 2008Q1

REPORT INFORMATION
  Report Type: 
  Country: None (occurrence: None)
  Receive Date: 20080317
  Receipt Date: 20080306
  Transmission Date: 20080703
  Serious: Yes (Other)
  Sender: FDA-Public Use
  Company Number: PHBS2008GB03072

PATIENT
  Age: 39 Year
  Sex: Female

DRUGS (3)
  1. CARBAMAZEPINE [Suspect]
  2. BACLOFEN [Suspect]
  3. STEROIDS [Suspect]

REACTIONS (11)
  - AORTIC VALVE REPLACEMENT [None]
  - ARTHRALGIA [None]
  - BLOOD CULTURE POSITIVE [None]
  - DRUG INEFFECTIVE [None]
  - ENDOCARDITIS BACTERIAL [None]
  - FATIGUE [None]
  - NIGHT SWEATS [None]
  - RED BLOOD CELL SEDIMENTATION RATE ABNORMAL [None]
  - RHEUMATOID FACTOR POSITIVE [None]
  - STREPTOCOCCAL BACTERAEMIA [None]
  - TREMOR [None]
